FAERS Safety Report 6185339-4 (Version None)
Quarter: 2009Q2

REPORT INFORMATION
  Report Type: 
  Country: None (occurrence: None)
  Receive Date: 20090511
  Receipt Date: 20090407
  Transmission Date: 20091009
  Serious: No
  Sender: FDA-Public Use
  Company Number: US-BAYER-200911153BCC

PATIENT
  Age: 37 Year
  Sex: Female

DRUGS (3)
  1. MIDOL [Suspect]
     Indication: DYSMENORRHOEA
     Dosage: TOTAL DAILY DOSE: 220 MG  UNIT DOSE: 220 MG
     Route: 048
     Dates: start: 20090407
  2. MIDOL [Suspect]
  3. VITAMIN B-12 [Concomitant]

REACTIONS (1)
  - BONE PAIN [None]
